FAERS Safety Report 6808213-6 (Version None)
Quarter: 2010Q2

REPORT INFORMATION
  Report Type: 
  Country: None (occurrence: None)
  Receive Date: 20100629
  Receipt Date: 20090515
  Transmission Date: 20101027
  Serious: Yes (Other)
  Sender: FDA-Public Use
  Company Number: US-PFIZER INC-2009192719

PATIENT
  Age: 57 Year
  Sex: Male
  Weight: 70.306 kg

DRUGS (2)
  1. VIAGRA [Suspect]
     Indication: ERECTILE DYSFUNCTION
     Route: 048
  2. TAMSULOSIN HYDROCHLORIDE [Concomitant]

REACTIONS (4)
  - EJACULATION DISORDER [None]
  - ERECTION INCREASED [None]
  - INFECTION [None]
  - UNEVALUABLE EVENT [None]
